FAERS Safety Report 8279552-X (Version None)
Quarter: 2012Q2

REPORT INFORMATION
  Report Type: 
  Country: None (occurrence: None)
  Receive Date: 20120412
  Receipt Date: 20110901
  Transmission Date: 20120825
  Serious: No
  Sender: FDA-Public Use
  Company Number: US-ASTRAZENECA-2010SE28451

PATIENT
  Age: 78 Year
  Sex: Female

DRUGS (4)
  1. DETROL [Concomitant]
  2. SYNTHROID [Concomitant]
  3. EVISTA [Concomitant]
  4. NEXIUM [Suspect]
     Route: 048

REACTIONS (5)
  - CHEST PAIN [None]
  - GASTROOESOPHAGEAL REFLUX DISEASE [None]
  - WEIGHT DECREASED [None]
  - DRUG DOSE OMISSION [None]
  - DENTAL CARIES [None]
